FAERS Safety Report 25916162 (Version 1)
Quarter: 2025Q4

REPORT INFORMATION
  Report Type: Spontaneous
  Country: EU (occurrence: EU)
  Receive Date: 20251014
  Receipt Date: 20251014
  Transmission Date: 20260118
  Serious: Yes (Hospitalization, Other)
  Sender: ACCORD
  Company Number: None

PATIENT
  Age: 80 Year
  Sex: Male

DRUGS (4)
  1. CARBOPLATIN [Suspect]
     Active Substance: CARBOPLATIN
     Indication: Epithelioid mesothelioma
     Dosage: 314 MG
     Dates: start: 20250821, end: 20250821
  2. ONDANSETRON [Concomitant]
     Active Substance: ONDANSETRON
     Indication: Chemotherapy side effect prophylaxis
     Dosage: 8 MG
     Dates: start: 20250821, end: 20250821
  3. DECADRON [Concomitant]
     Active Substance: DEXAMETHASONE
     Indication: Chemotherapy side effect prophylaxis
     Dosage: 16 MG
     Dates: start: 20250821, end: 20250821
  4. PREDNISONE [Concomitant]
     Active Substance: PREDNISONE
     Indication: Chemotherapy side effect prophylaxis

REACTIONS (3)
  - Erythema [Recovered/Resolved]
  - Nausea [Recovered/Resolved]
  - Throat tightness [Recovered/Resolved]

NARRATIVE: CASE EVENT DATE: 20250821
